FAERS Safety Report 21486267 (Version 1)
Quarter: 2022Q4

REPORT INFORMATION
  Report Type: Report from Study
  Country: US (occurrence: US)
  Receive Date: 20221020
  Receipt Date: 20221020
  Transmission Date: 20230112
  Serious: Yes (Other)
  Sender: FDA-Public Use
  Company Number: US-BRISTOL-MYERS SQUIBB COMPANY-2022-123578

PATIENT
  Age: 69 Year
  Sex: Male
  Weight: 92.99 kg

DRUGS (12)
  1. REVLIMID [Suspect]
     Active Substance: LENALIDOMIDE
     Indication: Plasma cell myeloma
     Dosage: 14 OUT OF 21 DAYS
     Route: 048
     Dates: start: 20220209
  2. XANAX [Concomitant]
     Active Substance: ALPRAZOLAM
  3. DEXAMETHASONE [Concomitant]
     Active Substance: DEXAMETHASONE
  4. ZINC [Concomitant]
     Active Substance: ZINC
  5. VITAMIN B COMPLEX [CYANOCOBALAMIN] [Concomitant]
  6. ACYCLOVIR [Concomitant]
     Active Substance: ACYCLOVIR
  7. BIOTIN [Concomitant]
     Active Substance: BIOTIN
  8. LISINOPRIL [Concomitant]
     Active Substance: LISINOPRIL
  9. DARZALEX [Concomitant]
     Active Substance: DARATUMUMAB
  10. ONDANSETRON [Concomitant]
     Active Substance: ONDANSETRON
  11. ZARXIO [Concomitant]
     Active Substance: FILGRASTIM-SNDZ
  12. IBUPROFEN [Concomitant]
     Active Substance: IBUPROFEN

REACTIONS (2)
  - Gastrointestinal disorder [Unknown]
  - Off label use [Unknown]

NARRATIVE: CASE EVENT DATE: 20220601
